FAERS Safety Report 7909279-2 (Version None)
Quarter: 2011Q4

REPORT INFORMATION
  Report Type: 
  Country: None (occurrence: None)
  Receive Date: 20111111
  Receipt Date: 20111103
  Transmission Date: 20120403
  Serious: Yes (Other)
  Sender: FDA-Public Use
  Company Number: US-UCBSA-8044134

PATIENT
  Age: 2 Month
  Sex: Male
  Weight: 3.111 kg

DRUGS (5)
  1. KEPPRA [Suspect]
     Indication: EPILEPSY
     Dosage: DOSE FREQ.: DAILY
     Route: 064
  2. GLUCOPHAGE [Concomitant]
     Indication: DIABETES MELLITUS
     Route: 064
  3. KEPPRA [Suspect]
  4. CLOMID [Concomitant]
     Indication: INFERTILITY
     Route: 064
  5. MULTI-VITAMINS [Concomitant]
     Indication: PREGNANCY
     Route: 064

REACTIONS (16)
  - EAR PAIN [None]
  - GASTROENTERITIS [None]
  - MOTOR DYSFUNCTION [None]
  - VOMITING [None]
  - PSYCHOMOTOR SKILLS IMPAIRED [None]
  - DIARRHOEA [None]
  - RASH GENERALISED [None]
  - COUGH [None]
  - POSITIONAL PLAGIOCEPHALY [None]
  - LEARNING DISORDER [None]
  - GRAND MAL CONVULSION [None]
  - FOETAL EXPOSURE DURING PREGNANCY [None]
  - EPISTAXIS [None]
  - ACUTE SINUSITIS [None]
  - RHINITIS ALLERGIC [None]
  - UPPER RESPIRATORY TRACT INFECTION [None]
